FAERS Safety Report 8502712-7 (Version None)
Quarter: 2012Q3

REPORT INFORMATION
  Report Type: 
  Country: None (occurrence: None)
  Receive Date: 20120706
  Receipt Date: 20120706
  Transmission Date: 20120928
  Serious: No
  Sender: FDA-Public Use
  Company Number: None

PATIENT
  Age: 68 Year
  Sex: Female
  Weight: 74.8435 kg

DRUGS (1)
  1. EDARBYCLOR [Suspect]

REACTIONS (8)
  - HEADACHE [None]
  - ABDOMINAL PAIN UPPER [None]
  - DIZZINESS [None]
  - DISTURBANCE IN ATTENTION [None]
  - DEPRESSED LEVEL OF CONSCIOUSNESS [None]
  - NAUSEA [None]
  - DECREASED ACTIVITY [None]
  - FEELING ABNORMAL [None]
